FAERS Safety Report 19803396 (Version 1)
Quarter: 2021Q3

REPORT INFORMATION
  Report Type: Spontaneous
  Country: US (occurrence: US)
  Receive Date: 20210908
  Receipt Date: 20210908
  Transmission Date: 20211014
  Serious: No
  Sender: FDA-Public Use
  Company Number: US-REGENERON PHARMACEUTICALS, INC.-2020-50279

PATIENT

DRUGS (2)
  1. PRALUENT [Suspect]
     Active Substance: ALIROCUMAB
     Dosage: 75 MG, Q3W
     Route: 058
  2. PRALUENT [Suspect]
     Active Substance: ALIROCUMAB
     Indication: CORONARY ARTERY DISEASE
     Dosage: 75 MG, Q2W
     Route: 058
     Dates: start: 20190620

REACTIONS (3)
  - Injection site haemorrhage [Unknown]
  - Injection site erythema [Not Recovered/Not Resolved]
  - Inappropriate schedule of product administration [Unknown]

NARRATIVE: CASE EVENT DATE: 20200715
